FAERS Safety Report 5942409-0 (Version None)
Quarter: 2008Q4

REPORT INFORMATION
  Report Type: 
  Country: None (occurrence: None)
  Receive Date: 20081105
  Receipt Date: 20081030
  Transmission Date: 20090506
  Serious: Yes (Hospitalization, Other)
  Sender: FDA-Public Use
  Company Number: US-PFIZER INC-2007079842

PATIENT
  Sex: Male
  Weight: 74.8 kg

DRUGS (3)
  1. CHANTIX [Suspect]
     Indication: EX-TOBACCO USER
     Route: 048
     Dates: start: 20061201
  2. LIPITOR [Concomitant]
  3. TENORMIN [Concomitant]

REACTIONS (11)
  - ALCOHOLIC LIVER DISEASE [None]
  - ANGER [None]
  - DIARRHOEA [None]
  - DIVERTICULUM [None]
  - GASTROINTESTINAL DISORDER [None]
  - HAEMOGLOBIN DECREASED [None]
  - PAIN [None]
  - PEPTIC ULCER [None]
  - RECTAL HAEMORRHAGE [None]
  - ULCER HAEMORRHAGE [None]
  - VOMITING [None]
